FAERS Safety Report 4570224-1 (Version None)
Quarter: 2005Q1

REPORT INFORMATION
  Report Type: 
  Country: None (occurrence: None)
  Receive Date: 20050126
  Receipt Date: 20050126
  Transmission Date: 20050727
  Serious: Yes (Hospitalization)
  Sender: FDA-Public Use
  Company Number: None

PATIENT
  Age: 51 Year
  Sex: Male
  Weight: 73.0291 kg

DRUGS (2)
  1. LORAZEPAM [Suspect]
     Indication: SEDATION
     Dosage: SEE ATTACHED
  2. MORPHINE [Suspect]

REACTIONS (1)
  - ENCEPHALOPATHY [None]
